FAERS Safety Report 8387547-0 (Version None)
Quarter: 2012Q2

REPORT INFORMATION
  Report Type: 
  Country: None (occurrence: None)
  Receive Date: 20120525
  Receipt Date: 20120522
  Transmission Date: 20120825
  Serious: Yes (Other)
  Sender: FDA-Public Use
  Company Number: PHEH2011US011439

PATIENT
  Sex: Male
  Weight: 91 kg

DRUGS (14)
  1. EXJADE [Suspect]
     Dosage: 16 MG/KG, DAILY
     Route: 048
     Dates: start: 20111026
  2. FOLIC ACID [Concomitant]
     Dosage: 1 MG, DAILY
     Route: 048
  3. PYRIDOXINE HCL [Concomitant]
     Dosage: 500 MG, DAILY
  4. VENLAFAXINE [Concomitant]
     Dosage: 37.5 MG, BID
     Route: 048
  5. LISINOPRIL [Concomitant]
     Dosage: 20 MG, DAILY
     Route: 048
  6. EXJADE [Suspect]
     Indication: MYELODYSPLASTIC SYNDROME
     Dosage: 11 MG/KG, DAILY
     Route: 048
     Dates: start: 20111021
  7. CARVEDILOL [Concomitant]
     Dosage: 3.13 MG, BID
     Route: 048
  8. FINASTERIDE [Concomitant]
     Dosage: 5 MG, DAILY
     Route: 048
  9. TAMSULOSIN HCL [Concomitant]
     Dosage: 0.4 MG, DAILY
     Route: 048
  10. SIMVASTATIN [Concomitant]
     Dosage: 20 MG, DAILY
     Route: 048
  11. PRADAXA [Concomitant]
     Dosage: 150 MG, BID
     Route: 048
  12. EXJADE [Suspect]
     Dosage: 11 MG/KG, DAILY
     Route: 048
     Dates: end: 20111128
  13. RANITIDINE HCL [Concomitant]
     Dosage: 150 MG, BID
     Route: 048
  14. ZOLPIDEM [Concomitant]
     Dosage: 10 MG, DAILY
     Route: 048

REACTIONS (4)
  - CONFUSIONAL STATE [None]
  - FATIGUE [None]
  - ANAEMIA [None]
  - DRUG INTOLERANCE [None]
